FAERS Safety Report 9469467 (Version 3)
Quarter: 2014Q3

REPORT INFORMATION
  Report Type: Spontaneous
  Country: US (occurrence: US)
  Receive Date: 20130822
  Receipt Date: 20140715
  Transmission Date: 20150326
  Serious: Yes (Other)
  Sender: FDA-Public Use
  Company Number: US-ASTRAZENECA-2013SE63459

PATIENT
  Age: 67 Year
  Sex: Female
  Weight: 80.6 kg

DRUGS (21)
  1. VITAMIN D [Concomitant]
     Active Substance: CHOLECALCIFEROL
     Indication: VITAMIN SUPPLEMENTATION
     Dosage: 1000 UNIT
  2. B6 [Concomitant]
     Active Substance: PYRIDOXINE HYDROCHLORIDE
     Indication: VITAMIN SUPPLEMENTATION
  3. ARIMIDEX [Suspect]
     Active Substance: ANASTROZOLE
     Indication: BREAST CANCER IN SITU
     Route: 048
     Dates: start: 2010
  4. ARIMIDEX [Suspect]
     Active Substance: ANASTROZOLE
     Indication: BREAST CANCER IN SITU
     Route: 048
     Dates: start: 201310
  5. TOPROL XL [Suspect]
     Active Substance: METOPROLOL SUCCINATE
     Indication: HYPERTENSION
     Dosage: METOPROLOL SUCCINATE MYLAN, 50 MG DAILY
     Route: 048
     Dates: start: 20130408, end: 201304
  6. CRESTOR [Suspect]
     Active Substance: ROSUVASTATIN CALCIUM
     Route: 048
     Dates: end: 201307
  7. ASPIRIN. [Concomitant]
     Active Substance: ASPIRIN
  8. VITAMIN E [Concomitant]
     Active Substance: .ALPHA.-TOCOPHEROL
     Indication: VITAMIN SUPPLEMENTATION
  9. MAGNESIUM [Concomitant]
     Active Substance: MAGNESIUM
     Indication: VITAMIN SUPPLEMENTATION
  10. MULTIVITAMINS [Concomitant]
     Active Substance: VITAMINS
     Route: 048
  11. BYSTOLIC [Concomitant]
     Active Substance: NEBIVOLOL HYDROCHLORIDE
     Route: 048
  12. LISINOPRIL. [Concomitant]
     Active Substance: LISINOPRIL
  13. ARIMIDEX [Suspect]
     Active Substance: ANASTROZOLE
     Indication: BREAST CANCER IN SITU
     Route: 048
     Dates: start: 201307
  14. TOPROL XL [Suspect]
     Active Substance: METOPROLOL SUCCINATE
     Indication: HYPERTENSION
     Route: 048
  15. TOPROL XL [Suspect]
     Active Substance: METOPROLOL SUCCINATE
     Indication: HYPERTENSION
     Dosage: METOPROLOL SUCCINATE MYLAN, ONE HALF OF 50 MG DAILY
     Route: 048
     Dates: start: 201304, end: 201307
  16. TOPROL XL [Suspect]
     Active Substance: METOPROLOL SUCCINATE
     Indication: HYPERTENSION
     Dosage: METOPROLOL SUCCINATE MYLAN, ONE HALF OF 50 MG DAILY
     Route: 048
     Dates: start: 201307
  17. TRIPLE OMEGA 369 [Concomitant]
     Indication: VITAMIN SUPPLEMENTATION
  18. CARDIZEM [Concomitant]
     Active Substance: DILTIAZEM HYDROCHLORIDE
     Route: 048
     Dates: start: 20130511
  19. ARIMIDEX [Suspect]
     Active Substance: ANASTROZOLE
     Indication: BREAST CANCER IN SITU
     Route: 048
     Dates: start: 2011, end: 201307
  20. TOPROL XL [Suspect]
     Active Substance: METOPROLOL SUCCINATE
     Indication: HYPERTENSION
     Route: 048
  21. VITAMIN D [Concomitant]
     Active Substance: CHOLECALCIFEROL
     Indication: VITAMIN SUPPLEMENTATION
     Dosage: 2000 UNIT, 1 EVERY DAY

REACTIONS (27)
  - Cardiac murmur [Unknown]
  - Rhinitis allergic [Unknown]
  - Vitamin D deficiency [Unknown]
  - Hypertrophic cardiomyopathy [Not Recovered/Not Resolved]
  - Road traffic accident [Recovered/Resolved]
  - Asthenia [Unknown]
  - Presyncope [Not Recovered/Not Resolved]
  - Left ventricular hypertrophy [Unknown]
  - Peripheral swelling [Not Recovered/Not Resolved]
  - Ligament sprain [Unknown]
  - Syncope [Unknown]
  - Fall [Recovered/Resolved]
  - Cardiomegaly [Unknown]
  - Drug intolerance [Recovered/Resolved]
  - Pain in extremity [Not Recovered/Not Resolved]
  - Hypertension [Not Recovered/Not Resolved]
  - Visual acuity reduced [Not Recovered/Not Resolved]
  - Dizziness [Recovering/Resolving]
  - Type 2 diabetes mellitus [Not Recovered/Not Resolved]
  - Hyperglycaemia [Unknown]
  - Sinusitis [Unknown]
  - Dyspnoea [Not Recovered/Not Resolved]
  - Fatigue [Unknown]
  - Cough [Unknown]
  - Joint stiffness [Unknown]
  - Multiple allergies [Unknown]
  - Osteopenia [Unknown]

NARRATIVE: CASE EVENT DATE: 2013
